FAERS Safety Report 10071958 (Version 1)
Quarter: 2014Q2

REPORT INFORMATION
  Report Type: Spontaneous
  Country: FR (occurrence: FR)
  Receive Date: 20140411
  Receipt Date: 20140411
  Transmission Date: 20141212
  Serious: Yes (Hospitalization)
  Sender: FDA-Public Use
  Company Number: FR-BRISTOL-MYERS SQUIBB COMPANY-20613923

PATIENT
  Age: 82 Year
  Sex: Female

DRUGS (1)
  1. ABILIFY TABS 15 MG [Suspect]
     Route: 048

REACTIONS (1)
  - Pneumonia [Unknown]
